FAERS Safety Report 12829086 (Version 1)
Quarter: 2016Q4

REPORT INFORMATION
  Report Type: Spontaneous
  Country: US (occurrence: US)
  Receive Date: 20161007
  Receipt Date: 20161007
  Transmission Date: 20170207
  Serious: No
  Sender: FDA-Public Use
  Company Number: US-SA-2016SA046203

PATIENT
  Age: 46 Year
  Sex: Female
  Weight: 76 kg

DRUGS (5)
  1. PROVIGIL [Concomitant]
     Active Substance: MODAFINIL
     Dates: start: 2016
  2. VITAMIN B12 [Concomitant]
     Active Substance: CYANOCOBALAMIN
  3. AUBAGIO [Suspect]
     Active Substance: TERIFLUNOMIDE
     Indication: MULTIPLE SCLEROSIS
     Route: 048
     Dates: start: 201502
  4. VITAMIN D [Concomitant]
     Active Substance: CHOLECALCIFEROL
  5. ZOLOFT [Concomitant]
     Active Substance: SERTRALINE HYDROCHLORIDE
     Dates: start: 201504, end: 201504

REACTIONS (4)
  - Alopecia [Recovered/Resolved]
  - Pruritus [Unknown]
  - Hypoaesthesia [Unknown]
  - Paraesthesia [Unknown]

NARRATIVE: CASE EVENT DATE: 201511
